FAERS Safety Report 5722062-1 (Version None)
Quarter: 2008Q2

REPORT INFORMATION
  Report Type: 
  Country: None (occurrence: None)
  Receive Date: 20080429
  Receipt Date: 20080417
  Transmission Date: 20081010
  Serious: Yes (Hospitalization)
  Sender: FDA-Public Use
  Company Number: FR-PFIZER INC-2008034604

PATIENT
  Sex: Female

DRUGS (19)
  1. ALDACTONE [Suspect]
     Indication: CARDIAC FAILURE
     Route: 048
  2. ALDACTONE [Suspect]
     Route: 048
  3. XANAX [Suspect]
     Indication: ANXIETY
     Route: 048
  4. LASILIX [Suspect]
     Indication: HYPERTENSION
     Route: 048
  5. LASILIX [Suspect]
     Route: 048
  6. STABLON [Suspect]
     Indication: DEPRESSION
     Dosage: TEXT:2 DF
     Route: 048
  7. LISINOPRIL [Suspect]
     Indication: HYPERTENSION
     Route: 048
  8. ATHYMIL [Concomitant]
     Indication: DEPRESSION
     Dosage: DAILY DOSE:30MG
     Route: 048
  9. ATHYMIL [Concomitant]
     Dosage: DAILY DOSE:30MG
     Route: 048
  10. HEMIGOXINE NATIVELLE [Concomitant]
     Indication: CARDIAC FAILURE
     Route: 048
  11. HEMIGOXINE NATIVELLE [Concomitant]
     Route: 048
  12. FERROSTRANE [Concomitant]
     Indication: ANAEMIA
     Dosage: TEXT:1 DOSAGE FORM
     Route: 048
  13. FIXICAL [Concomitant]
     Indication: CALCIUM DEFICIENCY
     Route: 048
  14. OMEPRAZOLE [Concomitant]
     Indication: GASTRIC ULCER
     Dosage: DAILY DOSE:20MG
     Route: 048
  15. PREVISCAN [Concomitant]
     Route: 048
  16. ERCEFURYL [Concomitant]
     Dates: start: 20070222, end: 20070226
  17. MUCICLAR [Concomitant]
     Dates: start: 20070222, end: 20070226
  18. TRANSIPEG [Concomitant]
     Dates: start: 20070222, end: 20070226
  19. MICROLAX [Concomitant]
     Dates: start: 20070222, end: 20070226

REACTIONS (1)
  - HYPONATRAEMIA [None]
